FAERS Safety Report 9832963 (Version 2)
Quarter: 2014Q2

REPORT INFORMATION
  Report Type: Spontaneous
  Country: US (occurrence: US)
  Receive Date: 20140121
  Receipt Date: 20140404
  Transmission Date: 20141212
  Serious: No
  Sender: FDA-Public Use
  Company Number: US-009507513-1401USA008312

PATIENT
  Age: 27 Year
  Sex: Female
  Weight: 124.26 kg

DRUGS (1)
  1. NEXPLANON [Suspect]
     Indication: CONTRACEPTION
     Dosage: 1 ROD
     Route: 059
     Dates: start: 20130627, end: 20140117

REACTIONS (6)
  - Device breakage [Recovered/Resolved]
  - Device difficult to use [Recovered/Resolved]
  - Feeling abnormal [Unknown]
  - Complication of device insertion [Recovered/Resolved]
  - Hormone level abnormal [Unknown]
  - Medical device complication [Recovered/Resolved]
